FAERS Safety Report 12206003 (Version 2)
Quarter: 2016Q1

REPORT INFORMATION
  Report Type: Report from Study
  Country: PK (occurrence: PK)
  Receive Date: 20160323
  Receipt Date: 20160330
  Transmission Date: 20160526
  Serious: Yes (Other)
  Sender: FDA-Public Use
  Company Number: PHHY2016PK038478

PATIENT
  Age: 51 Year
  Sex: Female

DRUGS (2)
  1. EXELON PATCH [Suspect]
     Active Substance: RIVASTIGMINE
     Dosage: PATCH 10CM2
     Route: 062
     Dates: start: 20151002, end: 20151207
  2. EXELON PATCH [Suspect]
     Active Substance: RIVASTIGMINE
     Indication: DEMENTIA ALZHEIMER^S TYPE
     Dosage: PATCH 5CM2
     Route: 062
     Dates: start: 20150505, end: 20150929

REACTIONS (5)
  - Dementia Alzheimer^s type [Unknown]
  - Renal disorder [Recovered/Resolved]
  - Creatinine urine increased [Unknown]
  - Cardiac disorder [Recovered/Resolved]
  - Myocardial infarction [Unknown]

NARRATIVE: CASE EVENT DATE: 20151209
